FAERS Safety Report 11364183 (Version 1)
Quarter: 2015Q3

REPORT INFORMATION
  Report Type: Spontaneous
  Country: US (occurrence: None)
  Receive Date: 20150810
  Receipt Date: 20150810
  Transmission Date: 20151125
  Serious: No
  Sender: FDA-Public Use
  Company Number: None

PATIENT
  Age: 59 Year
  Sex: Male

DRUGS (8)
  1. METRONIDAZOLE. [Concomitant]
     Active Substance: METRONIDAZOLE
  2. SPRYCEL [Suspect]
     Active Substance: DASATINIB
     Indication: NEOPLASM MALIGNANT
     Route: 048
     Dates: start: 20150310
  3. TAMSULOSIN [Concomitant]
     Active Substance: TAMSULOSIN
  4. FERROUS [Concomitant]
     Active Substance: FERROUS SULFATE\GLYCINE
  5. CYCLOBENZAPRINE [Concomitant]
     Active Substance: CYCLOBENZAPRINE
  6. SULFMETH/TRIMETHOPRIM [Concomitant]
  7. VITAMIN D [Concomitant]
     Active Substance: CHOLECALCIFEROL
  8. CIPROFLOXACIN. [Concomitant]
     Active Substance: CIPROFLOXACIN

REACTIONS (2)
  - Drug ineffective [None]
  - Diarrhoea [None]
